FAERS Safety Report 5109954-1 (Version None)
Quarter: 2006Q3

REPORT INFORMATION
  Report Type: 
  Country: None (occurrence: None)
  Receive Date: 20060921
  Receipt Date: 20060913
  Transmission Date: 20061208
  Serious: Yes (Life-Threatening, Hospitalization)
  Sender: FDA-Public Use
  Company Number: DE-ABBOTT-06P-062-0343847-00

PATIENT
  Sex: Female
  Weight: 53 kg

DRUGS (8)
  1. HUMIRA [Suspect]
     Indication: RHEUMATOID ARTHRITIS
     Route: 058
     Dates: start: 20030101, end: 20060501
  2. METHOTREXATE SODIUM [Suspect]
     Indication: RHEUMATOID ARTHRITIS
     Dates: start: 20000101, end: 20060501
  3. PYRAZINAMIDE [Suspect]
     Indication: TUBERCULOSIS
  4. PYRAZINAMIDE [Suspect]
  5. ISONIAZID [Suspect]
     Indication: TUBERCULOSIS
  6. ISONIAZID [Suspect]
  7. PREDNISOLONE [Concomitant]
     Indication: RHEUMATOID ARTHRITIS
     Route: 048
     Dates: end: 20060501
  8. ESOMEPRAZOLE MAGNESIUM [Concomitant]
     Indication: DRUG USE FOR UNKNOWN INDICATION
     Route: 048

REACTIONS (8)
  - BLOOD PRESSURE DECREASED [None]
  - DRUG HYPERSENSITIVITY [None]
  - GASTROENTERITIS VIRAL [None]
  - GENERAL PHYSICAL HEALTH DETERIORATION [None]
  - PULMONARY TUBERCULOSIS [None]
  - PURPURA [None]
  - RASH MACULAR [None]
  - RESPIRATORY FAILURE [None]
